FAERS Safety Report 6683572-6 (Version None)
Quarter: 2010Q2

REPORT INFORMATION
  Report Type: 
  Country: None (occurrence: None)
  Receive Date: 20100413
  Receipt Date: 20100329
  Transmission Date: 20101027
  Serious: Yes (Death)
  Sender: FDA-Public Use
  Company Number: 2010AL001631

PATIENT
  Age: 56 Year
  Sex: Male

DRUGS (4)
  1. RISPERIDINE [Suspect]
     Indication: PSYCHOTIC DISORDER
     Dosage: 3 MG; BID; PO
     Route: 048
     Dates: start: 20080417
  2. VENLAFAXINE HCL [Suspect]
     Indication: PSYCHOTIC DISORDER
     Dosage: 75 MG;QD;PO
     Route: 048
     Dates: start: 20090108
  3. PROPRANOLOL [Concomitant]
  4. PROCYCLIDINE HYDROCHLORIDE 2MG TAB [Concomitant]

REACTIONS (9)
  - ARRHYTHMIA [None]
  - ARTERIOSCLEROSIS CORONARY ARTERY [None]
  - CARDIOTOXICITY [None]
  - CORONARY ARTERY THROMBOSIS [None]
  - LEFT VENTRICULAR HYPERTROPHY [None]
  - MYOCARDIAL ISCHAEMIA [None]
  - PULMONARY OEDEMA [None]
  - SUDDEN DEATH [None]
  - VENTRICULAR FIBRILLATION [None]
